FAERS Safety Report 21348672 (Version 1)
Quarter: 2022Q3

REPORT INFORMATION
  Report Type: Report from Study
  Country: US (occurrence: US)
  Receive Date: 20220919
  Receipt Date: 20220919
  Transmission Date: 20221026
  Serious: Yes (Other)
  Sender: FDA-Public Use
  Company Number: US-ASTELLAS-2022US032907

PATIENT
  Sex: Male

DRUGS (1)
  1. ENZALUTAMIDE [Suspect]
     Active Substance: ENZALUTAMIDE
     Indication: Product used for unknown indication
     Route: 048

REACTIONS (4)
  - Neuropathy peripheral [Unknown]
  - Memory impairment [Unknown]
  - Fall [Unknown]
  - Pain in extremity [Unknown]

NARRATIVE: CASE EVENT DATE: 20210101
